FAERS Safety Report 19446487 (Version 1)
Quarter: 2021Q2

REPORT INFORMATION
  Report Type: Spontaneous
  Country: US (occurrence: US)
  Receive Date: 20210622
  Receipt Date: 20210622
  Transmission Date: 20210717
  Serious: Yes (Other)
  Sender: FDA-Public Use
  Company Number: US-CIPLA LTD.-2021US04173

PATIENT

DRUGS (1)
  1. BUPROPION HYDROCHLORIDE XL [Suspect]
     Active Substance: BUPROPION HYDROCHLORIDE
     Indication: PRODUCT USED FOR UNKNOWN INDICATION
     Dosage: UNK
     Route: 065
     Dates: start: 202106

REACTIONS (10)
  - Varicella [Unknown]
  - Peripheral swelling [Unknown]
  - Feeling of body temperature change [Recovered/Resolved]
  - Arthritis [Unknown]
  - Skin exfoliation [Unknown]
  - Pruritus [Unknown]
  - Erythema [Unknown]
  - Arthralgia [Unknown]
  - Blister [Unknown]
  - Burning sensation [Unknown]

NARRATIVE: CASE EVENT DATE: 202106
